FAERS Safety Report 4725702-9 (Version None)
Quarter: 2005Q3

REPORT INFORMATION
  Report Type: 
  Country: None (occurrence: None)
  Receive Date: 20050722
  Receipt Date: 20050722
  Transmission Date: 20060218
  Serious: Yes (Hospitalization)
  Sender: FDA-Public Use
  Company Number: None

PATIENT
  Age: 63 Year
  Sex: Male

DRUGS (1)
  1. PHENYTOIN [Suspect]

REACTIONS (5)
  - ANTICONVULSANT DRUG LEVEL INCREASED [None]
  - BLOOD PRESSURE INCREASED [None]
  - BRAIN SCAN ABNORMAL [None]
  - INTERNATIONAL NORMALISED RATIO INCREASED [None]
  - ISCHAEMIA [None]
